FAERS Safety Report 5070383-0 (Version None)
Quarter: 2006Q3

REPORT INFORMATION
  Report Type: 
  Country: None (occurrence: None)
  Receive Date: 20060731
  Receipt Date: 20060719
  Transmission Date: 20061208
  Serious: Yes (Death)
  Sender: FDA-Public Use
  Company Number: 060724-0000725

PATIENT

DRUGS (6)
  1. COSMOGEN (DACTINOMYCIN FOR INJECTION) [Suspect]
     Indication: EWING'S SARCOMA
     Dosage: IV
     Route: 042
  2. VINCRISTINE SULFATE [Suspect]
     Indication: EWING'S SARCOMA
  3. IFOSFAMIDE [Suspect]
     Indication: EWING'S SARCOMA
  4. ETOPOSIDE [Suspect]
     Indication: EWING'S SARCOMA
  5. DOXORUBICIN HCL [Suspect]
     Indication: EWING'S SARCOMA
  6. CYCLOPHOSPHAMIDE [Suspect]
     Indication: EWING'S SARCOMA

REACTIONS (1)
  - ADVERSE EVENT [None]
